FAERS Safety Report 25314555 (Version 3)
Quarter: 2025Q2

REPORT INFORMATION
  Report Type: Report from Study
  Country: US (occurrence: US)
  Receive Date: 20250514
  Receipt Date: 20250611
  Transmission Date: 20250716
  Serious: Yes (Other)
  Sender: ABBVIE
  Company Number: US-ABBVIE-6279723

PATIENT
  Age: 37 Year
  Sex: Female

DRUGS (4)
  1. SKYRIZI [Suspect]
     Active Substance: RISANKIZUMAB-RZAA
     Indication: Psoriatic arthropathy
     Route: 058
     Dates: start: 20250509
  2. SKYRIZI [Suspect]
     Active Substance: RISANKIZUMAB-RZAA
     Route: 058
     Dates: start: 20250306, end: 20250416
  3. INSULIN NOS [Concomitant]
     Active Substance: INSULIN NOS
     Indication: Product used for unknown indication
  4. TREMFYA [Suspect]
     Active Substance: GUSELKUMAB
     Indication: Product used for unknown indication
     Route: 065

REACTIONS (17)
  - Loss of consciousness [Recovering/Resolving]
  - Stress [Unknown]
  - Memory impairment [Unknown]
  - Dizziness [Unknown]
  - Myalgia [Recovering/Resolving]
  - Migraine [Not Recovered/Not Resolved]
  - Pollakiuria [Not Recovered/Not Resolved]
  - Hyperhidrosis [Not Recovered/Not Resolved]
  - Weight decreased [Recovering/Resolving]
  - Diarrhoea [Recovered/Resolved with Sequelae]
  - Feeling hot [Not Recovered/Not Resolved]
  - Back pain [Recovering/Resolving]
  - Abdominal pain upper [Not Recovered/Not Resolved]
  - Arthralgia [Recovering/Resolving]
  - Crying [Recovered/Resolved with Sequelae]
  - Somnolence [Not Recovered/Not Resolved]
  - Symptom recurrence [Not Recovered/Not Resolved]

NARRATIVE: CASE EVENT DATE: 20250101
